FAERS Safety Report 10225854 (Version 1)
Quarter: 2014Q2

REPORT INFORMATION
  Report Type: Spontaneous
  Country: US (occurrence: US)
  Receive Date: 20140609
  Receipt Date: 20140609
  Transmission Date: 20141212
  Serious: No
  Sender: FDA-Public Use
  Company Number: US-B.I. PHARMACEUTICALS,INC./RIDGEFIELD-2014-BI-24063BP

PATIENT
  Age: 79 Year
  Sex: Female

DRUGS (6)
  1. ATROVENT [Suspect]
     Indication: CHRONIC OBSTRUCTIVE PULMONARY DISEASE
     Dosage: 136 MCG
     Route: 055
     Dates: start: 2004
  2. SYMBICORT [Concomitant]
     Route: 055
  3. THEOPHYLLINE [Concomitant]
     Route: 048
     Dates: start: 20140514
  4. FUROSEMIDE [Concomitant]
     Route: 048
  5. POTASSIUM [Concomitant]
     Route: 048
  6. BONIVA [Concomitant]
     Route: 048

REACTIONS (3)
  - Fluid retention [Not Recovered/Not Resolved]
  - Chest discomfort [Not Recovered/Not Resolved]
  - Dyspnoea [Not Recovered/Not Resolved]
